FAERS Safety Report 9583760 (Version 1)
Quarter: 2013Q4

REPORT INFORMATION
  Report Type: Spontaneous
  Country: US (occurrence: US)
  Receive Date: 20131002
  Receipt Date: 20131002
  Transmission Date: 20140711
  Serious: No
  Sender: FDA-Public Use
  Company Number: US-AMGEN-USASP2013048749

PATIENT
  Age: 58 Year
  Sex: Female
  Weight: 72.11 kg

DRUGS (7)
  1. ENBREL [Suspect]
     Indication: PRODUCT USED FOR UNKNOWN INDICATION
     Dosage: 50 MG, QWK
     Route: 058
  2. AMOXICILLIN [Concomitant]
     Dosage: 250 MG, UNK
  3. SIMVASTATIN [Concomitant]
     Dosage: 10 MG, UNK
  4. GLUCOSAMINE /CHOND                 /03040701/ [Concomitant]
     Dosage: UNK 250-200
  5. FISH OIL [Concomitant]
     Dosage: UNK
  6. ALLERGY                            /00000402/ [Concomitant]
     Dosage: 25 MG, UNK
  7. CALCIUM +D                         /00944201/ [Concomitant]
     Dosage: UNK

REACTIONS (1)
  - Oral herpes [Unknown]
